FAERS Safety Report 16354183 (Version 3)
Quarter: 2020Q2

REPORT INFORMATION
  Report Type: Report from Study
  Country: US (occurrence: US)
  Receive Date: 20190524
  Receipt Date: 20200415
  Transmission Date: 20200713
  Serious: Yes (Hospitalization, Other)
  Sender: FDA-Public Use
  Company Number: US-ACTELION-A-NJ2019-190779

PATIENT
  Age: 8 Month
  Sex: Male

DRUGS (9)
  1. DIURIL [Concomitant]
     Active Substance: CHLOROTHIAZIDE
  2. SILDENAFIL CITRATE. [Concomitant]
     Active Substance: SILDENAFIL CITRATE
  3. HELIUM W/OXYGEN [Concomitant]
  4. ALDACTONE [Concomitant]
     Active Substance: SPIRONOLACTONE
  5. VITAMIN D [Concomitant]
     Active Substance: VITAMIN D NOS
     Dosage: 400 UNK
     Route: 048
  6. CYPROHEPTADINE HCL [Concomitant]
     Active Substance: CYPROHEPTADINE HYDROCHLORIDE
  7. TRACLEER [Suspect]
     Active Substance: BOSENTAN
     Indication: PULMONARY ARTERIAL HYPERTENSION
     Dosage: 10.6 MG, BID
     Route: 048
     Dates: start: 201811
  8. LEVALBUTEROL HCL [Concomitant]
     Active Substance: LEVALBUTEROL HYDROCHLORIDE
     Dosage: 0.63 MG/ 3 ML
  9. CETIRIZINE HCL [Concomitant]
     Active Substance: CETIRIZINE HYDROCHLORIDE

REACTIONS (24)
  - Hyperhidrosis [Unknown]
  - Bronchiolitis [Unknown]
  - Respiratory failure [Unknown]
  - Aspiration [Unknown]
  - Oxygen saturation decreased [Unknown]
  - Pneumonia aspiration [Recovered/Resolved]
  - Oxygen consumption increased [Unknown]
  - Fungal skin infection [Unknown]
  - Tachycardia [Unknown]
  - Pulmonary congestion [Unknown]
  - Pyrexia [Unknown]
  - Seborrhoeic dermatitis [Unknown]
  - Overfeeding of infant [Unknown]
  - Gastrooesophageal reflux disease [Unknown]
  - Wheezing [Unknown]
  - Pain [Recovering/Resolving]
  - Spinal cord operation [Unknown]
  - Breath sounds abnormal [Unknown]
  - Cough [Unknown]
  - Dermatitis atopic [Unknown]
  - Malaise [Unknown]
  - Vomiting [Unknown]
  - Viral infection [Unknown]
  - Gastrostomy tube site complication [Unknown]

NARRATIVE: CASE EVENT DATE: 20181231
